FAERS Safety Report 24440863 (Version 2)
Quarter: 2024Q4

REPORT INFORMATION
  Report Type: Report from Study
  Country: BA (occurrence: BA)
  Receive Date: 20241016
  Receipt Date: 20241017
  Transmission Date: 20250114
  Serious: No
  Sender: ROCHE
  Company Number: BA-ROCHE-3444523

PATIENT
  Age: 1 Year
  Sex: Male
  Weight: 14.9 kg

DRUGS (4)
  1. HEMLIBRA [Suspect]
     Active Substance: EMICIZUMAB-KXWH
     Indication: Factor VIII deficiency
     Dosage: SUBSEQUENT DOSE WAS GIVEN ON 13/AUG/2021, 20/AUG/2021 17/SEP/2021, 29/OCT/2021
     Route: 058
     Dates: start: 20210806, end: 20210903
  2. HEMLIBRA [Suspect]
     Active Substance: EMICIZUMAB-KXWH
     Route: 058
     Dates: start: 20210903, end: 20211126
  3. HEMLIBRA [Suspect]
     Active Substance: EMICIZUMAB-KXWH
     Dosage: SUBSEQUENT DOSE ON 12/OCT/2021, 27/NOV/2021, 10/DEC/2021, 24/DEC/2021, 07/JAN/2022, 21/JAN/2022, 08/
     Route: 058
     Dates: start: 20211127
  4. ANTIHEMOPHILIC FACTOR, HUMAN RECOMBINANT [Suspect]
     Active Substance: ANTIHEMOPHILIC FACTOR, HUMAN RECOMBINANT
     Indication: Factor VIII deficiency
     Dosage: 250 IU
     Route: 042
     Dates: start: 20210329, end: 20210802

REACTIONS (1)
  - Upper respiratory tract infection [Recovered/Resolved]

NARRATIVE: CASE EVENT DATE: 20210921
